FAERS Safety Report 16140746 (Version 3)
Quarter: 2020Q4

REPORT INFORMATION
  Report Type: Report from Study
  Country: None (occurrence: DE)
  Receive Date: 20190401
  Receipt Date: 20201203
  Transmission Date: 20210113
  Serious: Yes (Hospitalization, Other)
  Sender: FDA-Public Use
  Company Number: DE-ABBVIE-19K-062-2721023-00

PATIENT
  Age: 49 Year
  Sex: Male
  Weight: 86 kg

DRUGS (4)
  1. HUMIRA [Suspect]
     Active Substance: ADALIMUMAB
     Indication: ANKYLOSING SPONDYLITIS
     Route: 058
     Dates: start: 20150313, end: 20180801
  2. PREDNISOLONE. [Concomitant]
     Active Substance: PREDNISOLONE
     Indication: PRODUCT USED FOR UNKNOWN INDICATION
  3. PANTOPRAZOLE [Concomitant]
     Active Substance: PANTOPRAZOLE
     Indication: PRODUCT USED FOR UNKNOWN INDICATION
  4. SALBUTAMOL [Concomitant]
     Active Substance: ALBUTEROL
     Indication: PRODUCT USED FOR UNKNOWN INDICATION

REACTIONS (24)
  - Neutrophil count abnormal [Unknown]
  - Granulocytes abnormal [Unknown]
  - Phagocytosis [Unknown]
  - Eosinophilia [Unknown]
  - Lung infiltration [Unknown]
  - Oropharyngeal pain [Recovered/Resolved]
  - Granuloma [Unknown]
  - Weight bearing difficulty [Recovered/Resolved]
  - Vertebral lesion [Unknown]
  - Weight decreased [Unknown]
  - Bronchitis chronic [Unknown]
  - Tracheal ulcer [Unknown]
  - Langerhans^ cell histiocytosis [Unknown]
  - Pulmonary tuberculosis [Recovered/Resolved]
  - White blood cells urine positive [Unknown]
  - Night sweats [Unknown]
  - Urine analysis abnormal [Unknown]
  - Pneumonia [Unknown]
  - Dyspnoea exertional [Recovered/Resolved]
  - Tracheitis [Unknown]
  - Metaplasia [Unknown]
  - Alveolitis [Unknown]
  - Fatigue [Recovered/Resolved]
  - Asthma [Unknown]

NARRATIVE: CASE EVENT DATE: 2018
